FAERS Safety Report 9164895 (Version 2)
Quarter: 2013Q1

REPORT INFORMATION
  Report Type: Spontaneous
  Country: US (occurrence: None)
  Receive Date: 20130226
  Receipt Date: 20130326
  Transmission Date: 20140127
  Serious: Yes (Other)
  Sender: FDA-Public Use
  Company Number: ACO_34391_2013

PATIENT
  Sex: Female

DRUGS (18)
  1. AMPYRA [Suspect]
     Indication: PRODUCT USED FOR UNKNOWN INDICATION
     Dates: start: 201007
  2. EVISTA [Suspect]
  3. CARBAMAZEPINE (CARBAMAZEPINE) [Concomitant]
  4. GEMFIBROZIL (GEMFIBROZIL) [Concomitant]
  5. ATENOLOL (ATENOLOL) [Concomitant]
  6. METFORMIN HCL (METFORMIN HYDROCHLORIDE) [Concomitant]
  7. MINOCYCLINE (MINOCYCLINE) [Concomitant]
  8. HYDROCHLOROTHIAZIDE (HYDROCHLOROTHIAZIDE) [Concomitant]
  9. BACLOFEN (BACLOFEN) (BACLOFEN) [Concomitant]
  10. CRESTOR (ROSUVASTATIN CALCIUM) [Concomitant]
  11. LEVOTHYROXINE (LEVOTHYROXINE) [Concomitant]
  12. VITAMIN C [Concomitant]
  13. CALCIUM 500+D (CALCIUM, COLECALCIFEROL) [Concomitant]
  14. ASPIRIN (ACETYLSALICYLIC ACID) [Concomitant]
  15. METHYLPREDNISOLONE (METHYLPREDNISOLONE) [Concomitant]
  16. SENNA S (DOCUSATE SODIUM, SENNOSIDE A+B) [Concomitant]
  17. MULTIVITAMIN (VITAMINS NOS) [Concomitant]
  18. VITAMIN D (ERGOCALCIFEROL) [Concomitant]

REACTIONS (3)
  - Hernia repair [None]
  - Bladder dysfunction [None]
  - Adverse drug reaction [None]
